FAERS Safety Report 9217053 (Version 3)
Quarter: 2013Q2

REPORT INFORMATION
  Report Type: Spontaneous
  Country: DK (occurrence: IT)
  Receive Date: 20130408
  Receipt Date: 20130513
  Transmission Date: 20140414
  Serious: Yes (Other)
  Sender: FDA-Public Use
  Company Number: IT-FRI-1000044062

PATIENT
  Age: 36 Year
  Sex: Male

DRUGS (8)
  1. CITALOPRAM [Suspect]
     Indication: INTENTIONAL SELF-INJURY
     Route: 048
     Dates: start: 201301, end: 20130316
  2. CITALOPRAM [Suspect]
     Dosage: OVERDOSE: UNKNOWN DOSE
     Route: 048
     Dates: start: 20130317, end: 20130317
  3. SEROQUEL [Suspect]
     Indication: INTENTIONAL SELF-INJURY
     Dosage: 50 MG
     Route: 048
     Dates: start: 201301, end: 20130316
  4. SEROQUEL [Suspect]
     Dosage: OVERDOSE: UNKNOWN DOSE
     Route: 048
     Dates: start: 20130317, end: 20130317
  5. DELORAZEPAM [Suspect]
     Indication: INTENTIONAL SELF-INJURY
     Route: 048
     Dates: start: 201301, end: 20130316
  6. DELORAZEPAM [Suspect]
     Dosage: OVERDOSE: UNKNOWN DOSE
     Route: 048
     Dates: start: 20130317, end: 20130317
  7. ALPRAZOLAM [Suspect]
     Indication: INTENTIONAL SELF-INJURY
     Route: 048
     Dates: start: 201301, end: 20130316
  8. ALPRAZOLAM [Suspect]
     Dosage: OVERDOSE: UNKNOWN DOSE
     Route: 048
     Dates: start: 20130317, end: 20130317

REACTIONS (4)
  - Speech disorder [Recovered/Resolved]
  - Sopor [Recovered/Resolved]
  - Intentional overdose [Recovered/Resolved]
  - Drug abuse [Recovered/Resolved]
